FAERS Safety Report 6747808-5 (Version None)
Quarter: 2010Q2

REPORT INFORMATION
  Report Type: 
  Country: None (occurrence: None)
  Receive Date: 20100528
  Receipt Date: 20100518
  Transmission Date: 20101027
  Serious: Yes (Hospitalization)
  Sender: FDA-Public Use
  Company Number: BR-MEDIMMUNE-MEDI-0011212

PATIENT
  Sex: Male
  Weight: 0.655 kg

DRUGS (6)
  1. SYNAGIS [Suspect]
     Route: 030
     Dates: start: 20100420, end: 20100420
  2. PROTOVIT [Concomitant]
     Route: 048
     Dates: start: 20100330
  3. FERROUS SULFATE TAB [Concomitant]
     Route: 048
     Dates: start: 20100330
  4. SODIUM CHLORIDE [Concomitant]
     Route: 045
     Dates: start: 20100304
  5. PNEUMOCOCCAL VACCINE [Concomitant]
     Dates: start: 20100503
  6. HEPATITIS B VACCINE [Concomitant]
     Dates: start: 20100517

REACTIONS (3)
  - APNOEA [None]
  - BACTERAEMIA [None]
  - CYANOSIS [None]
